FAERS Safety Report 10573408 (Version 2)
Quarter: 2015Q2

REPORT INFORMATION
  Report Type: Spontaneous
  Country: US (occurrence: US)
  Receive Date: 20141110
  Receipt Date: 20150604
  Transmission Date: 20150821
  Serious: Yes (Other)
  Sender: FDA-Public Use
  Company Number: US-BAYER-2014-165436

PATIENT
  Age: 27 Year
  Sex: Female
  Weight: 67.12 kg

DRUGS (2)
  1. METROGEL [Concomitant]
     Active Substance: METRONIDAZOLE
     Dosage: UNK
     Dates: start: 2005
  2. MIRENA [Suspect]
     Active Substance: LEVONORGESTREL
     Indication: CONTRACEPTION
     Dosage: 20 MCG/24HR, CONT
     Route: 015
     Dates: start: 20100401

REACTIONS (4)
  - Abdominal pain [None]
  - Injury [None]
  - Procedural pain [Not Recovered/Not Resolved]
  - Embedded device [None]
